FAERS Safety Report 10181400 (Version 2)
Quarter: 2014Q2

REPORT INFORMATION
  Report Type: Spontaneous
  Country: GB (occurrence: GB)
  Receive Date: 20140519
  Receipt Date: 20140625
  Transmission Date: 20141212
  Serious: Yes (Other)
  Sender: FDA-Public Use
  Company Number: GB-TEVA-481305ISR

PATIENT
  Age: 60 Year
  Sex: Male
  Weight: 86 kg

DRUGS (20)
  1. PERINDOPRIL [Suspect]
     Indication: HYPERTENSION
     Route: 048
     Dates: start: 20130301
  2. LANTUS [Concomitant]
     Dosage: 100 UNITS/ML. AS DIRECTED.
  3. MONOMIL XL [Concomitant]
     Dosage: 120 MILLIGRAM DAILY;
  4. TERBINAFINE [Concomitant]
     Dosage: 2 PERCENT DAILY;
  5. KETOCONAZOLE [Concomitant]
  6. ALPROSTADIL [Concomitant]
     Dosage: USE AS DIRECTED.
  7. METFORMIN [Concomitant]
     Dosage: 3000 MILLIGRAM DAILY;
  8. GLYCERYL TRINITRATE [Concomitant]
     Dosage: AS DIRECTED.
  9. EZETIMIBE [Concomitant]
     Dosage: 10 MILLIGRAM DAILY;
  10. FLUOXETINE [Concomitant]
     Dosage: 20 MILLIGRAM DAILY;
  11. OMEPRAZOLE [Concomitant]
     Dosage: 40 MILLIGRAM DAILY;
  12. NICORANDIL [Concomitant]
     Dosage: 40 MILLIGRAM DAILY;
  13. FERROUS FUMARATE [Concomitant]
     Dosage: 420 MILLIGRAM DAILY;
  14. PROPRANOLOL [Concomitant]
     Dosage: 120 MILLIGRAM DAILY;
  15. ASPIRIN [Concomitant]
     Dosage: 75 MILLIGRAM DAILY;
  16. ATORVASTATIN [Concomitant]
     Dosage: 40 MILLIGRAM DAILY; EARLY EVENING.
  17. FOLIC ACID [Concomitant]
     Dosage: 5 MILLIGRAM DAILY;
  18. GLICLAZIDE [Concomitant]
     Dosage: 320 MILLIGRAM DAILY;
  19. CHLORPHENAMINE [Concomitant]
     Dosage: 1 TAKEN EVERY 4 - 6 HOURS.
  20. PERINDOPRIL ERBUMINE [Concomitant]
     Dosage: 8 MILLIGRAM DAILY;

REACTIONS (2)
  - Syncope [Recovered/Resolved]
  - Product substitution issue [Unknown]
